FAERS Safety Report 21072527 (Version 1)
Quarter: 2022Q3

REPORT INFORMATION
  Report Type: Spontaneous
  Country: US (occurrence: None)
  Receive Date: 20220712
  Receipt Date: 20220712
  Transmission Date: 20221027
  Serious: Yes (Hospitalization)
  Sender: FDA-Public Use
  Company Number: None

PATIENT
  Sex: Female

DRUGS (23)
  1. HUMIRA [Suspect]
     Active Substance: ADALIMUMAB
     Indication: Product used for unknown indication
     Dosage: 40MG/0.8ML ?
     Route: 058
  2. ALBUTEROL TAB [Concomitant]
  3. ASPIRIN LOW TAB [Concomitant]
  4. BIOTIN POW [Concomitant]
  5. CHERATUSSIN SYP AC [Concomitant]
  6. DASETTA TAB [Concomitant]
  7. HUMIRA CF PEN-CD/UC/HS START [Concomitant]
  8. HUMIRA [Concomitant]
     Active Substance: ADALIMUMAB
  9. HUMIRA PEN KIT CD/UC/HS [Concomitant]
  10. IBUPROFEN TAB [Concomitant]
  11. METFORMIN TAB [Concomitant]
  12. MINOCYCLINE HYDROCHLORIDE [Concomitant]
     Active Substance: MINOCYCLINE HYDROCHLORIDE
  13. MULTI VITAMIN TAB MINERALS [Concomitant]
  14. OMEPRAZOLE TAB [Concomitant]
  15. PRAZOSIN HCL CAP [Concomitant]
  16. SERTRALINE HYDROCHLORIDE [Concomitant]
     Active Substance: SERTRALINE HYDROCHLORIDE
  17. SPIRONOALCT TAB [Concomitant]
  18. TERBINAFINE TAB [Concomitant]
  19. TRAZODONE TAB [Concomitant]
  20. VENLAFAXINE TAB [Concomitant]
  21. VENTOLIN HFA [Concomitant]
     Active Substance: ALBUTEROL SULFATE
  22. VITAMIN B12 TAB [Concomitant]
  23. VITAMIN D3 [Concomitant]
     Active Substance: CHOLECALCIFEROL

REACTIONS (6)
  - Condition aggravated [None]
  - Skin lesion [None]
  - Infection [None]
  - Product dose omission issue [None]
  - Mastitis [None]
  - Pain [None]
